FAERS Safety Report 22669066 (Version 4)
Quarter: 2023Q4

REPORT INFORMATION
  Report Type: Report from Study
  Country: US (occurrence: US)
  Receive Date: 20230704
  Receipt Date: 20231201
  Transmission Date: 20240109
  Serious: Yes (Other)
  Sender: FDA-Public Use
  Company Number: US-SA-SAC20230703000341

PATIENT
  Age: 25 Year
  Sex: Male

DRUGS (4)
  1. EFMOROCTOCOG ALFA [Suspect]
     Active Substance: EFMOROCTOCOG ALFA
     Indication: Factor VIII deficiency
     Dosage: 6200 U (+/-10%), QOW
     Route: 042
     Dates: start: 20181121
  2. EFMOROCTOCOG ALFA [Suspect]
     Active Substance: EFMOROCTOCOG ALFA
     Indication: Factor VIII deficiency
     Dosage: 6200 U (+/-10%), QOW
     Route: 042
     Dates: start: 20181121
  3. EFMOROCTOCOG ALFA [Suspect]
     Active Substance: EFMOROCTOCOG ALFA
     Dosage: 6230 U
     Route: 042
  4. EFMOROCTOCOG ALFA [Suspect]
     Active Substance: EFMOROCTOCOG ALFA
     Dosage: 6230 U
     Route: 042

REACTIONS (7)
  - Post procedural haemorrhage [Recovered/Resolved]
  - Spinal operation [Recovered/Resolved]
  - Intervertebral disc protrusion [Unknown]
  - Back pain [Unknown]
  - Hypoaesthesia [Unknown]
  - Paraesthesia [Unknown]
  - Inappropriate schedule of product administration [Unknown]

NARRATIVE: CASE EVENT DATE: 20181121
